FAERS Safety Report 4338828-9 (Version None)
Quarter: 2004Q2

REPORT INFORMATION
  Report Type: 
  Country: None (occurrence: None)
  Receive Date: 20040409
  Receipt Date: 20040329
  Transmission Date: 20050107
  Serious: Yes (Hospitalization)
  Sender: FDA-Public Use
  Company Number: FR-JNJFOC-20040306304

PATIENT
  Age: 43 Year
  Sex: Male

DRUGS (3)
  1. TRAMADOL HCL [Suspect]
     Dosage: ORAL
     Route: 048
     Dates: start: 20031029, end: 20031030
  2. KETOPROFEN [Suspect]
     Dosage: ORAL
     Route: 048
     Dates: start: 20031029, end: 20031030
  3. TETRAZEPAM [Suspect]
     Dosage: ORAL
     Route: 048
     Dates: start: 20031029, end: 20031030

REACTIONS (2)
  - DRUG INTERACTION [None]
  - GASTRIC ULCER HAEMORRHAGE [None]
